FAERS Safety Report 4501503-1 (Version None)
Quarter: 2004Q4

REPORT INFORMATION
  Report Type: 
  Country: None (occurrence: None)
  Receive Date: 20041115
  Receipt Date: 20041108
  Transmission Date: 20050328
  Serious: Yes (Death, Hospitalization)
  Sender: FDA-Public Use
  Company Number: US-MERCK-0411USA01401

PATIENT
  Age: 76 Year
  Sex: Female

DRUGS (5)
  1. VIOXX [Suspect]
     Route: 048
     Dates: start: 20040501
  2. FOSAMAX [Concomitant]
     Route: 048
  3. AMITRIPTYLINE HYDROCHLORIDE [Concomitant]
     Route: 065
  4. VITAMIN E [Concomitant]
     Route: 065
  5. ASCORBIC ACID [Concomitant]
     Route: 065

REACTIONS (3)
  - DEATH [None]
  - DYSPNOEA [None]
  - MALIGNANT MELANOMA [None]
